FAERS Safety Report 5559585-4 (Version None)
Quarter: 2007Q4

REPORT INFORMATION
  Report Type: 
  Country: None (occurrence: None)
  Receive Date: 20071214
  Receipt Date: 20071001
  Transmission Date: 20080405
  Serious: No
  Sender: FDA-Public Use
  Company Number: US-ABBOTT-07P-163-0419691-00

PATIENT
  Sex: Male
  Weight: 52.21 kg

DRUGS (5)
  1. HUMIRA [Suspect]
     Indication: CROHN'S DISEASE
     Dosage: 160MG STARTER DOSE, THEN 80MG X1, THEN 40MG EVERY TWO WEEKS
     Route: 058
     Dates: end: 20070901
  2. HUMIRA [Suspect]
     Dosage: REBOLUSED AND STARTED PRIOR REGIMEN AGAIN
     Route: 058
     Dates: start: 20070901
  3. ARIPIPRAZOLE [Concomitant]
     Indication: ATTENTION DEFICIT/HYPERACTIVITY DISORDER
     Route: 048
  4. METFORMIN HCL [Concomitant]
     Indication: ATTENTION DEFICIT/HYPERACTIVITY DISORDER
     Route: 048
  5. FOCALIN XR [Concomitant]
     Indication: ATTENTION DEFICIT/HYPERACTIVITY DISORDER
     Route: 048

REACTIONS (2)
  - CROHN'S DISEASE [None]
  - INJECTION SITE PAIN [None]
